FAERS Safety Report 7764551-4 (Version None)
Quarter: 2011Q3

REPORT INFORMATION
  Report Type: 
  Country: None (occurrence: None)
  Receive Date: 20110921
  Receipt Date: 20110915
  Transmission Date: 20111222
  Serious: Yes (Death)
  Sender: FDA-Public Use
  Company Number: JP-PFIZER INC-2011219026

PATIENT
  Age: 72 Year
  Sex: Male

DRUGS (5)
  1. NAPROXEN [Concomitant]
     Indication: RENAL CELL CARCINOMA
     Dosage: UNK
     Route: 048
     Dates: end: 20110629
  2. REBAMIPIDE [Concomitant]
     Indication: PROPHYLAXIS
     Dosage: UNK
     Route: 048
     Dates: end: 20110620
  3. SENNOSIDE A+B [Concomitant]
     Indication: RENAL CELL CARCINOMA
     Dosage: 24 MG, 1X/DAY
     Route: 048
     Dates: end: 20110613
  4. TRAMADOL HYDROCHLORIDE [Concomitant]
     Indication: RENAL CELL CARCINOMA
     Dosage: UNK
  5. TEMSIROLIMUS [Suspect]
     Indication: RENAL CELL CARCINOMA
     Dosage: UNK
     Route: 041

REACTIONS (1)
  - DEATH [None]
